FAERS Safety Report 25922068 (Version 1)
Quarter: 2025Q4

REPORT INFORMATION
  Report Type: Spontaneous
  Country: US (occurrence: US)
  Receive Date: 20251015
  Receipt Date: 20251015
  Transmission Date: 20260118
  Serious: No
  Sender: ROCHE
  Company Number: US-ROCHE-10000405949

PATIENT
  Sex: Male
  Weight: 72.57 kg

DRUGS (13)
  1. ACTEMRA [Suspect]
     Active Substance: TOCILIZUMAB
     Indication: Transplant rejection
     Route: 042
     Dates: start: 202308
  2. TACROLIMUS [Concomitant]
     Active Substance: TACROLIMUS
     Dosage: 3.5MG IN THE MORNING AND 3MG AT NIGHT,
  3. PREDNISONE [Concomitant]
     Active Substance: PREDNISONE
  4. CELLCEPT [Concomitant]
     Active Substance: MYCOPHENOLATE MOFETIL
     Dosage: 2 TABLETS (TOTAL 1000MG) MORNING AND NIGHT,
  5. ACYCLOVIR [Concomitant]
     Active Substance: ACYCLOVIR
  6. BACTRIM [Concomitant]
     Active Substance: SULFAMETHOXAZOLE\TRIMETHOPRIM
     Route: 048
  7. ZITHROMAX [Concomitant]
     Active Substance: AZITHROMYCIN DIHYDRATE
  8. TRADJENTA [Concomitant]
     Active Substance: LINAGLIPTIN
  9. MAGNESIUM [Concomitant]
     Active Substance: MAGNESIUM
  10. ZOLOFT [Concomitant]
     Active Substance: SERTRALINE HYDROCHLORIDE
  11. VITAMIN D [Concomitant]
     Active Substance: VITAMIN D NOS
  12. IRON [Concomitant]
     Active Substance: IRON
  13. VITAMIN C [Concomitant]
     Active Substance: ASCORBIC ACID

REACTIONS (5)
  - Paranasal sinus hypersecretion [Recovered/Resolved]
  - Oropharyngeal pain [Unknown]
  - Throat irritation [Unknown]
  - Off label use [Unknown]
  - Nasopharyngitis [Unknown]
